FAERS Safety Report 9884950 (Version 1)
Quarter: 2014Q1

REPORT INFORMATION
  Report Type: Spontaneous
  Country: US (occurrence: None)
  Receive Date: 20140207
  Receipt Date: 20140207
  Transmission Date: 20141002
  Serious: No
  Sender: FDA-Public Use
  Company Number: None

PATIENT
  Age: 64 Year
  Sex: Female

DRUGS (1)
  1. AFINITOR [Suspect]
     Indication: BREAST CANCER
     Route: 048
     Dates: start: 20131019

REACTIONS (8)
  - Stomatitis [None]
  - Lip swelling [None]
  - Abscess [None]
  - Eating disorder [None]
  - Tongue ulceration [None]
  - Skin ulcer [None]
  - Wound haemorrhage [None]
  - Dyspnoea [None]
